FAERS Safety Report 22073910 (Version 1)
Quarter: 2023Q1

REPORT INFORMATION
  Report Type: Spontaneous
  Country: US (occurrence: US)
  Receive Date: 20230308
  Receipt Date: 20230308
  Transmission Date: 20230418
  Serious: No
  Sender: FDA-Public Use
  Company Number: US-PFIZER INC-202300094101

PATIENT
  Age: 14 Year
  Sex: Male
  Weight: 49.433 kg

DRUGS (1)
  1. GENOTROPIN [Suspect]
     Active Substance: SOMATROPIN
     Indication: Short stature
     Dosage: 1.8, EITHER MG OR ML NOT SURE AT TIME OF CALL, SOMETIMES IN ARM SOMETIMES IN LEG
     Dates: start: 202302

REACTIONS (2)
  - Wrong technique in device usage process [Unknown]
  - Drug dose omission by device [Unknown]
